FAERS Safety Report 26013060 (Version 2)
Quarter: 2025Q4

REPORT INFORMATION
  Report Type: Spontaneous
  Country: US (occurrence: US)
  Receive Date: 20251107
  Receipt Date: 20251229
  Transmission Date: 20260118
  Serious: No
  Sender: SANOFI AVENTIS
  Company Number: US-SA-2025SA324072

PATIENT
  Age: 25 Year
  Sex: Female

DRUGS (1)
  1. DUPIXENT [Suspect]
     Active Substance: DUPILUMAB
     Indication: Dermatitis atopic
     Dosage: 300 MG, QOW
     Route: 058

REACTIONS (6)
  - Perioral dermatitis [Unknown]
  - Weight increased [Unknown]
  - Angular cheilitis [Unknown]
  - Conjunctivitis [Unknown]
  - Oral herpes [Unknown]
  - Rash [Unknown]

NARRATIVE: CASE EVENT DATE: 20250101
